FAERS Safety Report 9375024 (Version 1)
Quarter: 2013Q2

REPORT INFORMATION
  Report Type: Spontaneous
  Country: US (occurrence: US)
  Receive Date: 20130628
  Receipt Date: 20130628
  Transmission Date: 20140414
  Serious: Yes (Other)
  Sender: FDA-Public Use
  Company Number: US-PAR PHARMACEUTICAL, INC-2013SCPR005991

PATIENT
  Sex: 0

DRUGS (2)
  1. METOCLOPRAMIDE [Suspect]
     Indication: GASTRIC DISORDER
     Dosage: 15 MG, 1/2 HOUR PRIOR TO MEALS DAILY
     Route: 048
     Dates: start: 2009
  2. PHENERGAN [Suspect]
     Indication: PRODUCT USED FOR UNKNOWN INDICATION
     Dosage: 25 MG, EVERY 8 HOUR PRN
     Route: 048
     Dates: start: 2009

REACTIONS (3)
  - Carpal tunnel syndrome [Unknown]
  - Tardive dyskinesia [Unknown]
  - Social problem [Unknown]
